FAERS Safety Report 18647323 (Version 1)
Quarter: 2020Q4

REPORT INFORMATION
  Report Type: Spontaneous
  Country: GB (occurrence: GB)
  Receive Date: 20201222
  Receipt Date: 20201222
  Transmission Date: 20210114
  Serious: Yes (Other)
  Sender: FDA-Public Use
  Company Number: GB-ACCORD-211395

PATIENT
  Age: 72 Year
  Sex: Male
  Weight: 73 kg

DRUGS (4)
  1. APIXABAN [Suspect]
     Active Substance: APIXABAN
     Indication: ATRIAL FIBRILLATION
     Route: 048
     Dates: start: 20200802, end: 20201002
  2. BISOPROLOL [Concomitant]
     Active Substance: BISOPROLOL
  3. ATORVASTATIN [Concomitant]
     Active Substance: ATORVASTATIN
  4. ACCORD HEALTHCARE FINASTERIDE [Concomitant]
     Active Substance: FINASTERIDE

REACTIONS (6)
  - Musculoskeletal stiffness [Unknown]
  - Joint swelling [Recovered/Resolved with Sequelae]
  - Peripheral swelling [Recovered/Resolved with Sequelae]
  - Arthralgia [Unknown]
  - Pain in extremity [Unknown]
  - Hot flush [Unknown]

NARRATIVE: CASE EVENT DATE: 20200807
